FAERS Safety Report 20566281 (Version 1)
Quarter: 2022Q1

REPORT INFORMATION
  Report Type: Spontaneous
  Country: CN (occurrence: CN)
  Receive Date: 20220308
  Receipt Date: 20220308
  Transmission Date: 20220423
  Serious: Yes (Other)
  Sender: FDA-Public Use
  Company Number: CN-PARATEK PHARMACEUTICALS, INC.-2022PTK00070

PATIENT
  Age: 78 Year
  Sex: Male

DRUGS (2)
  1. NUZYRA [Suspect]
     Active Substance: OMADACYCLINE
     Dosage: 200 MG, 1X/DAY
     Dates: start: 20220224, end: 20220224
  2. NUZYRA [Suspect]
     Active Substance: OMADACYCLINE
     Dosage: 100 MG, 1X/DAY
     Dates: start: 20220225

REACTIONS (3)
  - Ventricular tachycardia [Unknown]
  - Ventricular extrasystoles [Unknown]
  - Heart rate decreased [Unknown]

NARRATIVE: CASE EVENT DATE: 20220224
